FAERS Safety Report 7393607-3 (Version None)
Quarter: 2011Q2

REPORT INFORMATION
  Report Type: 
  Country: None (occurrence: None)
  Receive Date: 20110405
  Receipt Date: 20110402
  Transmission Date: 20111010
  Serious: No
  Sender: FDA-Public Use
  Company Number: US-PFIZER INC-2011073396

PATIENT
  Sex: Female

DRUGS (2)
  1. ADVIL LIQUI-GELS [Suspect]
     Indication: PERIARTHRITIS
     Dosage: UNK
  2. AMOXICILLIN [Concomitant]
     Dosage: UNK

REACTIONS (2)
  - PHARYNGITIS [None]
  - EPISTAXIS [None]
